FAERS Safety Report 5914825-4 (Version None)
Quarter: 2008Q4

REPORT INFORMATION
  Report Type: 
  Country: None (occurrence: None)
  Receive Date: 20081008
  Receipt Date: 20080929
  Transmission Date: 20090506
  Serious: Yes (Death)
  Sender: FDA-Public Use
  Company Number: US-GDP-08404699

PATIENT
  Age: 24 Year
  Sex: Female
  Weight: 52.1637 kg

DRUGS (3)
  1. ORACEA [Suspect]
     Indication: DRUG USE FOR UNKNOWN INDICATION
     Dosage: (ORAL)
     Route: 048
  2. KLONOPIN [Suspect]
     Indication: DRUG USE FOR UNKNOWN INDICATION
     Dosage: (ORAL)
     Route: 048
  3. CYMBALTA [Suspect]
     Indication: DRUG USE FOR UNKNOWN INDICATION
     Dosage: (ORAL)
     Route: 048

REACTIONS (6)
  - COMPLETED SUICIDE [None]
  - CRYING [None]
  - DISORIENTATION [None]
  - GUN SHOT WOUND [None]
  - PERSONALITY CHANGE [None]
  - WEIGHT DECREASED [None]
